FAERS Safety Report 8972186 (Version 1)
Quarter: 2012Q4

REPORT INFORMATION
  Report Type: 
  Country: US (occurrence: US)
  Receive Date: 20121219
  Receipt Date: 20121219
  Transmission Date: 20130627
  Serious: No
  Sender: FDA-Public Use
  Company Number: US-MYLANLABS-2011S1025551

PATIENT
  Age: 44 Year
  Sex: Female

DRUGS (1)
  1. LEVETIRACETAM [Suspect]
     Route: 048
     Dates: start: 20111205, end: 20111205

REACTIONS (7)
  - Wrong drug administered [Recovered/Resolved]
  - Somnolence [Recovered/Resolved]
  - Lethargy [Recovered/Resolved]
  - Dizziness [Recovered/Resolved]
  - Disturbance in attention [Recovered/Resolved]
  - Fatigue [Recovered/Resolved]
  - Sluggishness [Recovered/Resolved]
